FAERS Safety Report 6985441-0 (Version None)
Quarter: 2010Q3

REPORT INFORMATION
  Report Type: 
  Country: None (occurrence: None)
  Receive Date: 20100915
  Receipt Date: 20100908
  Transmission Date: 20110219
  Serious: Yes (Hospitalization)
  Sender: FDA-Public Use
  Company Number: A0849757A

PATIENT
  Age: 60 Year
  Sex: Male
  Weight: 117.7 kg

DRUGS (12)
  1. AVANDIA [Suspect]
     Indication: DIABETES MELLITUS
     Dosage: 4MG PER DAY
     Route: 048
     Dates: start: 20040325, end: 20070101
  2. AVANDAMET [Suspect]
     Route: 048
     Dates: start: 20040101, end: 20040101
  3. CARDIZEM [Concomitant]
  4. ADVAIR DISKUS 100/50 [Concomitant]
  5. ALBUTEROL [Concomitant]
  6. METFORMIN [Concomitant]
  7. PLAVIX [Concomitant]
  8. DILTIAZEM [Concomitant]
  9. GLUCOPHAGE [Concomitant]
  10. LASIX [Concomitant]
  11. LOTENSIN [Concomitant]
  12. ZOCOR [Concomitant]

REACTIONS (3)
  - CARDIAC FAILURE CONGESTIVE [None]
  - CORONARY ARTERY DISEASE [None]
  - MYOCARDIAL INFARCTION [None]
